FAERS Safety Report 9629663 (Version 2)
Quarter: 2014Q1

REPORT INFORMATION
  Report Type: Spontaneous
  Country: BR (occurrence: BR)
  Receive Date: 20131017
  Receipt Date: 20140122
  Transmission Date: 20141002
  Serious: Yes (Other)
  Sender: FDA-Public Use
  Company Number: BR-ASTRAZENECA-2013SE75894

PATIENT
  Age: 80 Year
  Sex: Male

DRUGS (4)
  1. SYMBICORT TURBUHALER [Suspect]
     Indication: ALLERGIC RESPIRATORY DISEASE
     Dosage: 320/9 MCG AS REQUIRED
     Route: 055
     Dates: start: 2007
  2. SYMBICORT TURBUHALER [Suspect]
     Indication: CHRONIC SINUSITIS
     Dosage: 320/9 MCG AS REQUIRED
     Route: 055
     Dates: start: 2007
  3. ZOLADEX LA [Suspect]
     Indication: PROSTATE CANCER
     Route: 058
     Dates: start: 2012, end: 201309
  4. LOSARTAN POTASSIUM [Concomitant]
     Indication: HYPERTENSION
     Dates: start: 2011

REACTIONS (4)
  - Prostate cancer [Recovered/Resolved]
  - Renal failure [Unknown]
  - Hypertension [Recovered/Resolved]
  - Respiratory disorder [Recovered/Resolved]
